FAERS Safety Report 9732636 (Version 3)
Quarter: 2014Q2

REPORT INFORMATION
  Report Type: Report from Study
  Country: US (occurrence: US)
  Receive Date: 20131205
  Receipt Date: 20140428
  Transmission Date: 20141212
  Serious: Yes (Other)
  Sender: FDA-Public Use
  Company Number: US-SA-2013SA123133

PATIENT
  Age: 68 Year
  Sex: Female

DRUGS (6)
  1. AUBAGIO [Suspect]
     Indication: MULTIPLE SCLEROSIS
     Route: 048
     Dates: start: 20130930, end: 20131222
  2. AUBAGIO [Suspect]
     Indication: MULTIPLE SCLEROSIS
     Route: 048
     Dates: end: 20140215
  3. LEVOTHYROXINE [Concomitant]
     Indication: THYROID DISORDER
  4. AMANTADINE [Concomitant]
  5. BACLOFEN [Concomitant]
     Indication: RESTLESS LEGS SYNDROME
  6. OXYBUTYNIN [Concomitant]
     Indication: INCONTINENCE

REACTIONS (5)
  - Kidney infection [Unknown]
  - Diarrhoea [Recovered/Resolved]
  - Chest pain [Unknown]
  - Influenza [Recovering/Resolving]
  - Drug dose omission [Unknown]
